FAERS Safety Report 7804241-2 (Version None)
Quarter: 2011Q4

REPORT INFORMATION
  Report Type: 
  Country: None (occurrence: None)
  Receive Date: 20111010
  Receipt Date: 20110927
  Transmission Date: 20120403
  Serious: No
  Sender: FDA-Public Use
  Company Number: PHEH2011US05274

PATIENT
  Sex: Female

DRUGS (12)
  1. TASIGNA [Suspect]
     Dosage: 300 MG, BID
     Route: 048
  2. LASIX [Concomitant]
     Dosage: 20 MG, DAILY
     Route: 048
  3. SUCRALFATE [Concomitant]
     Dosage: 1 G, DAILY
     Route: 048
  4. PAROXETINE HCL [Concomitant]
     Dosage: 10 MG, DAILY
     Route: 048
  5. LEVOTHYROXINE SODIUM [Concomitant]
     Dosage: 25 UG, DAILY
     Route: 048
  6. ACETAMINOPHEN AND HYDROCODONE BITARTRATE [Concomitant]
     Dosage: UNK UKN, UNK
  7. CETIRIZINE HCL [Concomitant]
     Dosage: 5 MG, DAILY
     Route: 048
  8. METOPROLOL TARTRATE [Concomitant]
     Dosage: 25 MG, DAILY
     Route: 048
  9. LOPRESSOR [Concomitant]
     Dosage: 50 MG, DAILY
     Route: 048
  10. SIMVASTATIN [Concomitant]
     Dosage: 5 MG, DAILY
     Route: 048
  11. OMEPRAZOLE [Concomitant]
     Dosage: 20 MG, DAILY
     Route: 048
  12. CYCLOBENZAPRINE [Concomitant]
     Dosage: 5 MG, DAILY
     Route: 048

REACTIONS (5)
  - PRURITUS [None]
  - WHITE BLOOD CELL COUNT INCREASED [None]
  - DRY SKIN [None]
  - ABDOMINAL PAIN UPPER [None]
  - ALOPECIA [None]
